FAERS Safety Report 7550125-7 (Version None)
Quarter: 2011Q2

REPORT INFORMATION
  Report Type: 
  Country: None (occurrence: None)
  Receive Date: 20110525
  Receipt Date: 20110222
  Transmission Date: 20111010
  Serious: No
  Sender: FDA-Public Use
  Company Number: 324124

PATIENT
  Sex: Female

DRUGS (2)
  1. METFORIN (METFORMIN) [Concomitant]
  2. VICTOZA [Suspect]
     Indication: TYPE 2 DIABETES MELLITUS
     Dosage: 0.6 MG, QD, SUBCUTANEOUS
     Route: 058
     Dates: start: 20110218, end: 20110219

REACTIONS (4)
  - SUDDEN HEARING LOSS [None]
  - DIZZINESS [None]
  - PRURITUS GENERALISED [None]
  - NAUSEA [None]
